FAERS Safety Report 5152183-6 (Version None)
Quarter: 2006Q4

REPORT INFORMATION
  Report Type: 
  Country: None (occurrence: None)
  Receive Date: 20061116
  Receipt Date: 20061107
  Transmission Date: 20070319
  Serious: Yes (Death, Hospitalization)
  Sender: FDA-Public Use
  Company Number: FR-GLAXOSMITHKLINE-B0446150A

PATIENT
  Age: 88 Year
  Sex: Female

DRUGS (1)
  1. ARIXTRA [Suspect]
     Route: 058
     Dates: start: 20060101, end: 20060101

REACTIONS (4)
  - HAEMATOMA INFECTION [None]
  - INCISION SITE HAEMORRHAGE [None]
  - POST PROCEDURAL HAEMATOMA [None]
  - STAPHYLOCOCCAL SEPSIS [None]
